FAERS Safety Report 20667772 (Version 1)
Quarter: 2022Q2

REPORT INFORMATION
  Report Type: Report from Study
  Country: US (occurrence: US)
  Receive Date: 20220404
  Receipt Date: 20220404
  Transmission Date: 20220720
  Serious: No
  Sender: FDA-Public Use
  Company Number: US-ACADIA PHARMACEUTICALS INC.-ACA-2022-PIM-000881

PATIENT
  Age: 69 Year
  Sex: Female
  Weight: 91 kg

DRUGS (7)
  1. NUPLAZID [Suspect]
     Active Substance: PIMAVANSERIN TARTRATE
     Indication: Parkinson^s disease psychosis
     Dosage: 34 MILLIGRAM, QD
     Route: 065
     Dates: end: 20220309
  2. NUPLAZID [Suspect]
     Active Substance: PIMAVANSERIN TARTRATE
     Indication: Hallucination
  3. NUPLAZID [Suspect]
     Active Substance: PIMAVANSERIN TARTRATE
     Indication: Delusion
  4. RISPERIDONE [Suspect]
     Active Substance: RISPERIDONE
  5. LISINOPRIL [Concomitant]
     Active Substance: LISINOPRIL
  6. MEMANTINE [Concomitant]
     Active Substance: MEMANTINE
  7. ALPRAZOLAM [Concomitant]
     Active Substance: ALPRAZOLAM

REACTIONS (3)
  - Product dose omission issue [Unknown]
  - Loss of personal independence in daily activities [Not Recovered/Not Resolved]
  - Somnolence [Not Recovered/Not Resolved]

NARRATIVE: CASE EVENT DATE: 20220310
